FAERS Safety Report 15946367 (Version 1)
Quarter: 2019Q1

REPORT INFORMATION
  Report Type: Spontaneous
  Country: CN (occurrence: CN)
  Receive Date: 20190211
  Receipt Date: 20190211
  Transmission Date: 20190417
  Serious: Yes (Other)
  Sender: FDA-Public Use
  Company Number: PHHY2019CN031236

PATIENT
  Age: 38 Year
  Sex: Male
  Weight: 57 kg

DRUGS (1)
  1. SEBIVO [Suspect]
     Active Substance: TELBIVUDINE
     Indication: ANTIVIRAL TREATMENT
     Dosage: 0.6 G, QD
     Route: 048
     Dates: start: 20160403, end: 20190102

REACTIONS (4)
  - Myocardial necrosis marker increased [Recovering/Resolving]
  - Myalgia [Recovering/Resolving]
  - Troponin T increased [Recovering/Resolving]
  - Asthenia [Recovering/Resolving]

NARRATIVE: CASE EVENT DATE: 20190102
